FAERS Safety Report 6051221-6 (Version None)
Quarter: 2009Q1

REPORT INFORMATION
  Report Type: 
  Country: None (occurrence: None)
  Receive Date: 20090121
  Receipt Date: 20090105
  Transmission Date: 20090719
  Serious: Yes (Death, Hospitalization)
  Sender: FDA-Public Use
  Company Number: 2009000011

PATIENT
  Age: 76 Year
  Sex: Male
  Weight: 53.9 kg

DRUGS (16)
  1. ERLOTINIB (ERLOTINIB) (TABLET) (ERLOTINIB) [Suspect]
     Indication: LUNG ADENOCARCINOMA
     Dosage: (150 MG, QD), ORAL
     Route: 048
     Dates: start: 20080409, end: 20080624
  2. BETAMETHASONE [Concomitant]
  3. BACTRAMIN (BACTRIM) [Concomitant]
  4. ISOSORBIDE (ISOSORBIDE) [Concomitant]
  5. ALLELOCK (OLOPATADINE HYDROCHLORIDE) [Concomitant]
  6. PURSENNID (SENNA LEAF) [Concomitant]
  7. FAMOTIDINE [Concomitant]
  8. ISOSORBIDE MONONITRATE [Concomitant]
  9. MEXITIL [Concomitant]
  10. DEPAS (ETIZOLAM) [Concomitant]
  11. PRAVASTATIN [Concomitant]
  12. ALLOPURINOL [Concomitant]
  13. AMARYL [Concomitant]
  14. ADONA (CARBAZOCHROME SODIUM SULFONATE) [Concomitant]
  15. TRANSAMIN (TRANEXAMIC ACID) [Concomitant]
  16. NAVELBINE [Concomitant]

REACTIONS (9)
  - ANOREXIA [None]
  - BLOOD CREATININE INCREASED [None]
  - DERMATITIS ACNEIFORM [None]
  - DIARRHOEA [None]
  - DRY SKIN [None]
  - GAIT DISTURBANCE [None]
  - HAEMOGLOBIN DECREASED [None]
  - LUNG ADENOCARCINOMA [None]
  - MALIGNANT NEOPLASM PROGRESSION [None]
